FAERS Safety Report 8970119 (Version 1)
Quarter: 2012Q4

REPORT INFORMATION
  Report Type: 
  Country: US (occurrence: US)
  Receive Date: 20121218
  Receipt Date: 20121218
  Transmission Date: 20130627
  Serious: Yes (Other)
  Sender: FDA-Public Use
  Company Number: US-PFIZER INC-2012314958

PATIENT
  Age: 26 Year
  Sex: Female
  Weight: 53 kg

DRUGS (5)
  1. BUPIVACAINE HCL [Suspect]
     Indication: EPIDURAL ANALGESIA
     Dosage: 2.5 mg, single
     Route: 037
  2. LIDOCAINE HCL [Suspect]
     Indication: EPIDURAL ANALGESIA
     Dosage: 3-mL test dose of 1.5%
  3. EPINEPHRINE [Suspect]
     Indication: EPIDURAL ANALGESIA
     Dosage: 15 ug, single
  4. FENTANYL [Suspect]
     Indication: EPIDURAL ANALGESIA
     Dosage: 25 ug, single
     Route: 037
  5. RINGER-LACTATE SOLUTION [Concomitant]
     Dosage: 1000 mL , UNK

REACTIONS (6)
  - Premature separation of placenta [Recovered/Resolved]
  - Uterine hypertonus [Recovered/Resolved]
  - Haematocrit decreased [None]
  - Caesarean section [None]
  - Exposure during pregnancy [None]
  - Uterine atony [None]
